FAERS Safety Report 14962968 (Version 1)
Quarter: 2018Q2

REPORT INFORMATION
  Report Type: Spontaneous
  Country: US (occurrence: US)
  Receive Date: 20180601
  Receipt Date: 20180601
  Transmission Date: 20180711
  Serious: No
  Sender: FDA-Public Use
  Company Number: US-ASTRAZENECA-2018SE67591

PATIENT
  Age: 77 Year
  Sex: Female
  Weight: 69.4 kg

DRUGS (5)
  1. NEURONTIN [Suspect]
     Active Substance: GABAPENTIN
     Indication: BIPOLAR DISORDER
     Dosage: 600MG TABLET, BY MOUTH, AT BEDTIME
     Route: 065
     Dates: start: 2016
  2. CLONAZEPAM. [Concomitant]
     Active Substance: CLONAZEPAM
     Indication: BIPOLAR DISORDER
  3. AMLODIPINE BESYLATE. [Concomitant]
     Active Substance: AMLODIPINE BESYLATE
     Indication: BIPOLAR DISORDER
     Dates: start: 2016
  4. SEROQUEL [Suspect]
     Active Substance: QUETIAPINE FUMARATE
     Route: 048
  5. SIMVASTATIN. [Concomitant]
     Active Substance: SIMVASTATIN
     Indication: BIPOLAR DISORDER
     Dates: start: 2012

REACTIONS (6)
  - Muscle spasms [Unknown]
  - Crying [Unknown]
  - Tremor [Not Recovered/Not Resolved]
  - Insomnia [Unknown]
  - Loss of dreaming [Unknown]
  - Palpitations [Unknown]

NARRATIVE: CASE EVENT DATE: 2016
